FAERS Safety Report 6883742-8 (Version None)
Quarter: 2010Q3

REPORT INFORMATION
  Report Type: 
  Country: None (occurrence: None)
  Receive Date: 20100729
  Receipt Date: 20100726
  Transmission Date: 20110219
  Serious: Yes (Other)
  Sender: FDA-Public Use
  Company Number: A0872802A

PATIENT
  Age: 35 Year
  Sex: Female

DRUGS (7)
  1. COMBIVIR [Suspect]
     Indication: HIV INFECTION
     Route: 048
  2. VIRACEPT [Suspect]
     Indication: HIV INFECTION
     Route: 048
  3. AMPICILLIN SODIUM [Concomitant]
  4. FLUNARIZINE [Concomitant]
  5. MEBENDAZOLE [Concomitant]
  6. METHYLDOPA [Concomitant]
  7. OXYTOCIN [Concomitant]

REACTIONS (2)
  - DRUG EXPOSURE DURING PREGNANCY [None]
  - STILLBIRTH [None]
